FAERS Safety Report 11069734 (Version 6)
Quarter: 2016Q1

REPORT INFORMATION
  Report Type: Spontaneous
  Country: US (occurrence: US)
  Receive Date: 20150427
  Receipt Date: 20160216
  Transmission Date: 20160525
  Serious: Yes (Other)
  Sender: FDA-Public Use
  Company Number: US-BAYER-2015-178853

PATIENT
  Age: 25 Year
  Sex: Female
  Weight: 95.24 kg

DRUGS (1)
  1. MIRENA [Suspect]
     Active Substance: LEVONORGESTREL
     Indication: CONTRACEPTION
     Dosage: 20 MCG/24HR, CONT
     Route: 015
     Dates: start: 20140121

REACTIONS (5)
  - Device dislocation [None]
  - Gestational hypertension [None]
  - Drug ineffective [None]
  - Premature delivery [None]
  - Pregnancy with contraceptive device [None]

NARRATIVE: CASE EVENT DATE: 2015
